FAERS Safety Report 8879798 (Version 2)
Quarter: 2012Q4

REPORT INFORMATION
  Report Type: 
  Country: US (occurrence: US)
  Receive Date: 20121101
  Receipt Date: 20121115
  Transmission Date: 20130627
  Serious: Yes (Other)
  Sender: FDA-Public Use
  Company Number: US-BRISTOL-MYERS SQUIBB COMPANY-17057373

PATIENT
  Age: 51 Year
  Sex: Female

DRUGS (1)
  1. KENALOG-40 INJ [Suspect]
     Dosage: Inj
     Route: 008

REACTIONS (7)
  - Hypoaesthesia [Unknown]
  - Pain [Unknown]
  - Incorrect route of drug administration [Unknown]
  - Hypotonia [Unknown]
  - Burning sensation [Unknown]
  - Ligament sprain [Unknown]
  - Weight decreased [Unknown]
